FAERS Safety Report 7285588-8 (Version None)
Quarter: 2011Q1

REPORT INFORMATION
  Report Type: 
  Country: None (occurrence: None)
  Receive Date: 20110210
  Receipt Date: 20110207
  Transmission Date: 20110831
  Serious: Yes (Hospitalization)
  Sender: FDA-Public Use
  Company Number: A0779248A

PATIENT
  Age: 55 Year
  Sex: Male
  Weight: 85.5 kg

DRUGS (8)
  1. LIPITOR [Concomitant]
  2. CLONAZEPAM [Concomitant]
  3. ACIPHEX [Concomitant]
  4. LISINOPRIL [Concomitant]
  5. AVANDIA [Suspect]
     Indication: DIABETES MELLITUS
     Dosage: 8MG PER DAY
     Route: 048
     Dates: start: 20010101, end: 20041101
  6. AVANDAMET [Suspect]
     Indication: DIABETES MELLITUS
     Route: 048
     Dates: start: 20051018, end: 20080101
  7. TRAMADOL HCL [Concomitant]
  8. OMEPRAZOLE [Concomitant]

REACTIONS (1)
  - MYOCARDIAL INFARCTION [None]
